FAERS Safety Report 19812429 (Version 1)
Quarter: 2021Q3

REPORT INFORMATION
  Report Type: Spontaneous
  Country: CN (occurrence: CN)
  Receive Date: 20210909
  Receipt Date: 20210909
  Transmission Date: 20211014
  Serious: Yes (Other)
  Sender: FDA-Public Use
  Company Number: CN-ROCHE-2903839

PATIENT
  Age: 40 Year
  Sex: Female
  Weight: 44.5 kg

DRUGS (1)
  1. TAMIFLU [Suspect]
     Active Substance: OSELTAMIVIR PHOSPHATE
     Indication: PNEUMONIA
     Route: 048
     Dates: start: 20210818, end: 20210820

REACTIONS (3)
  - Off label use [Unknown]
  - Halo vision [Recovered/Resolved]
  - Sleep talking [Recovered/Resolved]

NARRATIVE: CASE EVENT DATE: 20210820
